FAERS Safety Report 18706134 (Version 7)
Quarter: 2022Q1

REPORT INFORMATION
  Report Type: Spontaneous
  Country: US (occurrence: US)
  Receive Date: 20210106
  Receipt Date: 20220307
  Transmission Date: 20220424
  Serious: No
  Sender: FDA-Public Use
  Company Number: US-PFIZER INC-2020506192

PATIENT
  Age: 11 Year
  Sex: Female

DRUGS (2)
  1. GENOTROPIN [Suspect]
     Active Substance: SOMATROPIN
     Dosage: 1.6 MG, SIX DAYS PER WEEK
     Dates: start: 20150822
  2. GENOTROPIN [Suspect]
     Active Substance: SOMATROPIN
     Dosage: 1.6 MG, SIX DAYS PER WEEK
     Dates: start: 2016

REACTIONS (3)
  - Drug dose omission by device [Unknown]
  - Device use error [Unknown]
  - Device issue [Unknown]
